FAERS Safety Report 6170332-8 (Version None)
Quarter: 2009Q2

REPORT INFORMATION
  Report Type: 
  Country: None (occurrence: None)
  Receive Date: 20090427
  Receipt Date: 20090427
  Transmission Date: 20091009
  Serious: Yes (Life-Threatening, Hospitalization)
  Sender: FDA-Public Use
  Company Number: None

PATIENT
  Age: 82 Year
  Sex: Male
  Weight: 74.8435 kg

DRUGS (1)
  1. VALTREX [Suspect]
     Indication: HERPES ZOSTER
     Dosage: 1 G 3/DAY BY MOUTH
     Route: 048
     Dates: start: 20090325

REACTIONS (5)
  - CARDIAC PACEMAKER INSERTION [None]
  - DYSSTASIA [None]
  - HEART RATE DECREASED [None]
  - HYPOTENSION [None]
  - PRESYNCOPE [None]
